FAERS Safety Report 22125889 (Version 1)
Quarter: 2023Q1

REPORT INFORMATION
  Report Type: Spontaneous
  Country: EG (occurrence: EG)
  Receive Date: 20230322
  Receipt Date: 20230322
  Transmission Date: 20230417
  Serious: Yes (Other)
  Sender: FDA-Public Use
  Company Number: EG-PFIZER INC-PV202300053679

PATIENT
  Age: 60 Year
  Sex: Female

DRUGS (2)
  1. IBRANCE [Suspect]
     Active Substance: PALBOCICLIB
     Indication: Hormone receptor positive HER2 negative breast cancer
     Dosage: 100 MG, CYCLIC [1 TAB DAILY FOR 3 WEEKS ON AND 1 WEEK OFF 3 WEEKS ON AND 1 WEEK OFF]
     Route: 048
     Dates: start: 20210825
  2. ARIMIDEX [Concomitant]
     Active Substance: ANASTROZOLE
     Dosage: 1 DF [ONE TAB AFTER BREAKFAST]

REACTIONS (1)
  - Hepatitis [Unknown]
